FAERS Safety Report 4345181-3 (Version None)
Quarter: 2004Q2

REPORT INFORMATION
  Report Type: 
  Country: None (occurrence: None)
  Receive Date: 20040421
  Receipt Date: 20040421
  Transmission Date: 20050107
  Serious: Yes (Hospitalization)
  Sender: FDA-Public Use
  Company Number: None

PATIENT
  Sex: Female
  Weight: 3.42 kg

DRUGS (4)
  1. TWICE -A-DAY 12 HOUR NASAL SPRAY (MFGD. PROPHARMA INC) [Suspect]
     Indication: NASAL DECONGESTION THERAPY
     Dosage: ONE DOSE (DROPS) IN LEFT NOSTRIAL ONLY
     Route: 045
     Dates: start: 20040215
  2. VANCOMYCIN [Suspect]
     Dosage: ONE DOSE (DROPS) IN LEFT NOSTRIAL ONLY
     Dates: start: 20040307
  3. CEFOTAXIME [Suspect]
  4. TOBRAMYCIN [Suspect]

REACTIONS (1)
  - BACTERIAL INFECTION [None]
